FAERS Safety Report 9242875 (Version 2)
Quarter: 2013Q4

REPORT INFORMATION
  Report Type: Spontaneous
  Country: FR (occurrence: FR)
  Receive Date: 20130419
  Receipt Date: 20131105
  Transmission Date: 20140711
  Serious: Yes (Hospitalization)
  Sender: FDA-Public Use
  Company Number: FR-009507513-1304FRA005846

PATIENT
  Age: 35 Year
  Sex: Female

DRUGS (3)
  1. PUREGON [Suspect]
     Indication: IN VITRO FERTILISATION
     Dosage: 150 IU, QD
     Dates: start: 20121227, end: 20130105
  2. OVITRELLE [Suspect]
     Indication: IN VITRO FERTILISATION
     Dosage: 1 DF, ONCE
     Dates: start: 20130106, end: 20130106
  3. SYNAREL [Suspect]
     Indication: IN VITRO FERTILISATION
     Dosage: 1 DF, QD
     Route: 045
     Dates: start: 20121212, end: 20130105

REACTIONS (2)
  - Jugular vein thrombosis [Recovered/Resolved]
  - Ovarian hyperstimulation syndrome [Recovered/Resolved]
